FAERS Safety Report 17117629 (Version 2)
Quarter: 2020Q2

REPORT INFORMATION
  Report Type: Spontaneous
  Country: US (occurrence: US)
  Receive Date: 20191205
  Receipt Date: 20200514
  Transmission Date: 20200713
  Serious: No
  Sender: FDA-Public Use
  Company Number: US-BIOCODEX SA-201901413

PATIENT
  Age: 3 Year
  Sex: Female
  Weight: 15.9 kg

DRUGS (7)
  1. DIACOMIT [Suspect]
     Active Substance: STIRIPENTOL
     Indication: SEVERE MYOCLONIC EPILEPSY OF INFANCY
     Dosage: 250MG DAILY
     Route: 065
     Dates: start: 20191011
  2. DIACOMIT [Suspect]
     Active Substance: STIRIPENTOL
     Dosage: 250MG TWICE DAILY
  3. DIACOMIT [Suspect]
     Active Substance: STIRIPENTOL
     Dosage: 125 MG TWICE DAILY
     Route: 065
  4. ONFI [Concomitant]
     Active Substance: CLOBAZAM
     Indication: SEVERE MYOCLONIC EPILEPSY OF INFANCY
     Route: 065
  5. EPIDIOLEX [Concomitant]
     Active Substance: CANNABIDIOL
     Indication: PRODUCT USED FOR UNKNOWN INDICATION
     Route: 065
  6. LEVOCARNITINE. [Concomitant]
     Active Substance: LEVOCARNITINE
     Indication: PRODUCT USED FOR UNKNOWN INDICATION
     Route: 065
  7. DIACOMIT [Suspect]
     Active Substance: STIRIPENTOL
     Dosage: 250MG IN THE AM, 500MG IN THE PM
     Route: 065
     Dates: start: 20191011

REACTIONS (2)
  - Fatigue [Unknown]
  - Product dose omission [Unknown]

NARRATIVE: CASE EVENT DATE: 20191011
